FAERS Safety Report 6870591 (Version 10)
Quarter: 2025Q2

REPORT INFORMATION
  Report Type: Spontaneous
  Country: CA (occurrence: CA)
  Receive Date: 20081231
  Receipt Date: 20250618
  Transmission Date: 20250716
  Serious: Yes (Death, Hospitalization, Other)
  Sender: BRISTOL-MYERS SQUIBB COMPANY
  Company Number: CA-BRISTOL-MYERS SQUIBB COMPANY-14455729

PATIENT
  Age: 54 Year
  Sex: Male

DRUGS (138)
  1. ATAZANAVIR SULFATE [Interacting]
     Active Substance: ATAZANAVIR SULFATE
     Indication: Bipolar disorder
  2. ATAZANAVIR SULFATE [Interacting]
     Active Substance: ATAZANAVIR SULFATE
     Indication: HIV infection
     Route: 048
  3. ATAZANAVIR SULFATE [Interacting]
     Active Substance: ATAZANAVIR SULFATE
     Route: 005
  4. ATAZANAVIR SULFATE [Interacting]
     Active Substance: ATAZANAVIR SULFATE
     Route: 048
  5. ATAZANAVIR SULFATE [Interacting]
     Active Substance: ATAZANAVIR SULFATE
  6. ATAZANAVIR SULFATE [Interacting]
     Active Substance: ATAZANAVIR SULFATE
     Route: 048
  7. ATAZANAVIR SULFATE [Interacting]
     Active Substance: ATAZANAVIR SULFATE
     Route: 048
  8. ATAZANAVIR SULFATE [Interacting]
     Active Substance: ATAZANAVIR SULFATE
  9. ATAZANAVIR SULFATE [Interacting]
     Active Substance: ATAZANAVIR SULFATE
     Route: 005
  10. ATAZANAVIR SULFATE [Interacting]
     Active Substance: ATAZANAVIR SULFATE
     Route: 048
  11. SUSTIVA [Interacting]
     Active Substance: EFAVIRENZ
     Indication: HIV infection
     Dosage: 400 MILLIGRAM, BID
     Route: 048
     Dates: start: 2004
  12. SUSTIVA [Interacting]
     Active Substance: EFAVIRENZ
     Indication: Product used for unknown indication
  13. SUSTIVA [Interacting]
     Active Substance: EFAVIRENZ
     Route: 048
  14. SUSTIVA [Interacting]
     Active Substance: EFAVIRENZ
     Dosage: 400 MILLIGRAM, BID
     Dates: start: 2004
  15. SUSTIVA [Interacting]
     Active Substance: EFAVIRENZ
     Route: 048
     Dates: start: 2004
  16. SUSTIVA [Interacting]
     Active Substance: EFAVIRENZ
     Dosage: 400 MILLIGRAM
     Route: 048
  17. SUSTIVA [Interacting]
     Active Substance: EFAVIRENZ
     Dosage: 400 MILLIGRAM
     Route: 048
  18. SUSTIVA [Interacting]
     Active Substance: EFAVIRENZ
     Dosage: 400 MILLIGRAM
  19. SUSTIVA [Interacting]
     Active Substance: EFAVIRENZ
     Dosage: 400 MILLIGRAM
  20. SUSTIVA [Interacting]
     Active Substance: EFAVIRENZ
     Route: 048
  21. EFAVIRENZ [Interacting]
     Active Substance: EFAVIRENZ
     Indication: HIV infection
     Dosage: UNK
     Route: 048
  22. EFAVIRENZ [Interacting]
     Active Substance: EFAVIRENZ
     Dosage: UNK
     Route: 048
  23. EFAVIRENZ [Interacting]
     Active Substance: EFAVIRENZ
  24. EFAVIRENZ [Interacting]
     Active Substance: EFAVIRENZ
     Dosage: UNK
     Route: 048
  25. EFAVIRENZ [Interacting]
     Active Substance: EFAVIRENZ
     Dosage: UNK
     Route: 048
  26. EFAVIRENZ [Interacting]
     Active Substance: EFAVIRENZ
  27. EFAVIRENZ [Interacting]
     Active Substance: EFAVIRENZ
     Route: 048
  28. SERTRALINE HYDROCHLORIDE [Concomitant]
     Active Substance: SERTRALINE HYDROCHLORIDE
     Indication: HIV infection
     Dosage: 400 MILLIGRAM, BID
  29. SERTRALINE HYDROCHLORIDE [Concomitant]
     Active Substance: SERTRALINE HYDROCHLORIDE
     Indication: Bipolar disorder
     Route: 048
  30. SERTRALINE HYDROCHLORIDE [Concomitant]
     Active Substance: SERTRALINE HYDROCHLORIDE
     Route: 048
  31. SERTRALINE HYDROCHLORIDE [Concomitant]
     Active Substance: SERTRALINE HYDROCHLORIDE
  32. RITONAVIR [Concomitant]
     Active Substance: RITONAVIR
     Indication: HIV infection
  33. RITONAVIR [Concomitant]
     Active Substance: RITONAVIR
     Indication: Depression
  34. RISPERIDONE [Concomitant]
     Active Substance: RISPERIDONE
     Indication: Depression
  35. RALTEGRAVIR POTASSIUM [Concomitant]
     Active Substance: RALTEGRAVIR POTASSIUM
     Indication: HIV infection
  36. RALTEGRAVIR POTASSIUM [Concomitant]
     Active Substance: RALTEGRAVIR POTASSIUM
     Dosage: 400 MILLIGRAM, BID
     Route: 048
  37. RALTEGRAVIR POTASSIUM [Concomitant]
     Active Substance: RALTEGRAVIR POTASSIUM
     Dosage: 400 MILLIGRAM, BID
     Route: 048
  38. RALTEGRAVIR POTASSIUM [Concomitant]
     Active Substance: RALTEGRAVIR POTASSIUM
     Dosage: 400 MILLIGRAM, BID
     Route: 048
  39. RALTEGRAVIR POTASSIUM [Concomitant]
     Active Substance: RALTEGRAVIR POTASSIUM
     Dosage: 400 MILLIGRAM, BID
     Route: 048
  40. RALTEGRAVIR POTASSIUM [Concomitant]
     Active Substance: RALTEGRAVIR POTASSIUM
     Route: 048
  41. RALTEGRAVIR POTASSIUM [Concomitant]
     Active Substance: RALTEGRAVIR POTASSIUM
  42. RALTEGRAVIR POTASSIUM [Concomitant]
     Active Substance: RALTEGRAVIR POTASSIUM
  43. RALTEGRAVIR POTASSIUM [Concomitant]
     Active Substance: RALTEGRAVIR POTASSIUM
  44. RALTEGRAVIR POTASSIUM [Concomitant]
     Active Substance: RALTEGRAVIR POTASSIUM
  45. RALTEGRAVIR POTASSIUM [Concomitant]
     Active Substance: RALTEGRAVIR POTASSIUM
  46. RALTEGRAVIR POTASSIUM [Concomitant]
     Active Substance: RALTEGRAVIR POTASSIUM
  47. RALTEGRAVIR POTASSIUM [Concomitant]
     Active Substance: RALTEGRAVIR POTASSIUM
  48. RALTEGRAVIR POTASSIUM [Concomitant]
     Active Substance: RALTEGRAVIR POTASSIUM
  49. RALTEGRAVIR POTASSIUM [Concomitant]
     Active Substance: RALTEGRAVIR POTASSIUM
  50. RALTEGRAVIR POTASSIUM [Concomitant]
     Active Substance: RALTEGRAVIR POTASSIUM
  51. RALTEGRAVIR POTASSIUM [Concomitant]
     Active Substance: RALTEGRAVIR POTASSIUM
     Route: 048
  52. CITALOPRAM HYDROBROMIDE [Concomitant]
     Active Substance: CITALOPRAM HYDROBROMIDE
     Indication: Psychotic disorder
  53. CITALOPRAM HYDROBROMIDE [Concomitant]
     Active Substance: CITALOPRAM HYDROBROMIDE
     Indication: Depression
  54. QUETIAPINE [Concomitant]
     Active Substance: QUETIAPINE
     Indication: Bipolar disorder
  55. QUETIAPINE [Concomitant]
     Active Substance: QUETIAPINE
     Route: 048
  56. QUETIAPINE [Concomitant]
     Active Substance: QUETIAPINE
     Route: 048
  57. KALETRA [Concomitant]
     Active Substance: LOPINAVIR\RITONAVIR
     Indication: HIV infection
     Route: 048
  58. KALETRA [Concomitant]
     Active Substance: LOPINAVIR\RITONAVIR
     Route: 048
  59. KALETRA [Concomitant]
     Active Substance: LOPINAVIR\RITONAVIR
     Route: 048
  60. KALETRA [Concomitant]
     Active Substance: LOPINAVIR\RITONAVIR
     Route: 048
  61. KALETRA [Concomitant]
     Active Substance: LOPINAVIR\RITONAVIR
     Route: 048
  62. KALETRA [Concomitant]
     Active Substance: LOPINAVIR\RITONAVIR
  63. KALETRA [Concomitant]
     Active Substance: LOPINAVIR\RITONAVIR
     Route: 048
  64. LAMIVUDINE [Concomitant]
     Active Substance: LAMIVUDINE
     Indication: HIV infection
     Route: 048
  65. LAMIVUDINE [Concomitant]
     Active Substance: LAMIVUDINE
     Route: 005
  66. LAMIVUDINE [Concomitant]
     Active Substance: LAMIVUDINE
     Route: 005
  67. LAMIVUDINE [Concomitant]
     Active Substance: LAMIVUDINE
     Route: 048
  68. LAMIVUDINE [Concomitant]
     Active Substance: LAMIVUDINE
  69. LAMIVUDINE [Concomitant]
     Active Substance: LAMIVUDINE
  70. LAMIVUDINE [Concomitant]
     Active Substance: LAMIVUDINE
     Route: 005
  71. BUPROPION HYDROCHLORIDE [Concomitant]
     Active Substance: BUPROPION HYDROCHLORIDE
     Indication: Bipolar disorder
     Route: 048
  72. BUPROPION HYDROCHLORIDE [Concomitant]
     Active Substance: BUPROPION HYDROCHLORIDE
     Indication: Product used for unknown indication
  73. BUPROPION HYDROCHLORIDE [Concomitant]
     Active Substance: BUPROPION HYDROCHLORIDE
     Route: 048
  74. ISENTRESS [Concomitant]
     Active Substance: RALTEGRAVIR POTASSIUM
     Indication: HIV infection
     Dosage: 400 MILLIGRAM, BID
     Route: 048
     Dates: start: 20070620
  75. ISENTRESS [Concomitant]
     Active Substance: RALTEGRAVIR POTASSIUM
     Route: 048
  76. ISENTRESS [Concomitant]
     Active Substance: RALTEGRAVIR POTASSIUM
  77. ISENTRESS [Concomitant]
     Active Substance: RALTEGRAVIR POTASSIUM
     Dosage: 400 MILLIGRAM, BID
  78. ISENTRESS [Concomitant]
     Active Substance: RALTEGRAVIR POTASSIUM
     Dosage: 400 MILLIGRAM, BID
  79. ISENTRESS [Concomitant]
     Active Substance: RALTEGRAVIR POTASSIUM
     Dosage: 400 MILLIGRAM, BID
  80. ISENTRESS [Concomitant]
     Active Substance: RALTEGRAVIR POTASSIUM
     Dosage: 400 MILLIGRAM, BID
  81. CLONAZEPAM [Concomitant]
     Active Substance: CLONAZEPAM
     Indication: Bipolar disorder
     Route: 048
  82. CLONAZEPAM [Concomitant]
     Active Substance: CLONAZEPAM
     Indication: Mental disorder
  83. CLONAZEPAM [Concomitant]
     Active Substance: CLONAZEPAM
     Indication: Depression
     Route: 048
  84. BUPROPION [Concomitant]
     Active Substance: BUPROPION
     Indication: Bipolar disorder
     Route: 048
  85. BUPROPION [Concomitant]
     Active Substance: BUPROPION
     Indication: Depression
  86. BUPROPION [Concomitant]
     Active Substance: BUPROPION
     Route: 048
  87. BUPROPION [Concomitant]
     Active Substance: BUPROPION
  88. BUPROPION [Concomitant]
     Active Substance: BUPROPION
  89. BUPROPION [Concomitant]
     Active Substance: BUPROPION
     Route: 048
  90. BUPROPION [Concomitant]
     Active Substance: BUPROPION
     Route: 048
  91. BUPROPION [Concomitant]
     Active Substance: BUPROPION
  92. BUPROPION [Concomitant]
     Active Substance: BUPROPION
     Route: 048
  93. RIVOTRIL [Concomitant]
     Active Substance: CLONAZEPAM
     Indication: Bipolar disorder
     Route: 048
  94. RALTEGRAVIR [Concomitant]
     Active Substance: RALTEGRAVIR
     Indication: HIV infection
     Dosage: 400 MILLIGRAM, BID
     Route: 048
  95. RALTEGRAVIR [Concomitant]
     Active Substance: RALTEGRAVIR
     Dosage: 400 MILLIGRAM, BID
  96. RALTEGRAVIR [Concomitant]
     Active Substance: RALTEGRAVIR
  97. RALTEGRAVIR [Concomitant]
     Active Substance: RALTEGRAVIR
  98. RALTEGRAVIR [Concomitant]
     Active Substance: RALTEGRAVIR
  99. RALTEGRAVIR [Concomitant]
     Active Substance: RALTEGRAVIR
     Route: 048
  100. SERTRALINE [Concomitant]
     Active Substance: SERTRALINE HYDROCHLORIDE
     Indication: Bipolar disorder
  101. SERTRALINE [Concomitant]
     Active Substance: SERTRALINE HYDROCHLORIDE
     Indication: Mental disorder
  102. SERTRALINE [Concomitant]
     Active Substance: SERTRALINE HYDROCHLORIDE
     Route: 048
  103. SERTRALINE [Concomitant]
     Active Substance: SERTRALINE HYDROCHLORIDE
     Route: 048
  104. SERTRALINE [Concomitant]
     Active Substance: SERTRALINE HYDROCHLORIDE
  105. VALPROIC ACID [Concomitant]
     Active Substance: VALPROIC ACID
     Indication: Bipolar disorder
  106. VALPROIC ACID [Concomitant]
     Active Substance: VALPROIC ACID
     Indication: Mental disorder
  107. ZOPICLONE [Concomitant]
     Active Substance: ZOPICLONE
     Indication: Bipolar disorder
     Route: 048
  108. ZOPICLONE [Concomitant]
     Active Substance: ZOPICLONE
     Route: 048
  109. ZOPICLONE [Concomitant]
     Active Substance: ZOPICLONE
  110. ZOPICLONE [Concomitant]
     Active Substance: ZOPICLONE
  111. ZOPICLONE [Concomitant]
     Active Substance: ZOPICLONE
     Route: 048
  112. ENFUVIRTIDE [Concomitant]
     Active Substance: ENFUVIRTIDE
     Indication: HIV infection
     Route: 058
  113. ENFUVIRTIDE [Concomitant]
     Active Substance: ENFUVIRTIDE
  114. ENFUVIRTIDE [Concomitant]
     Active Substance: ENFUVIRTIDE
  115. ENFUVIRTIDE [Concomitant]
     Active Substance: ENFUVIRTIDE
  116. ENFUVIRTIDE [Concomitant]
     Active Substance: ENFUVIRTIDE
     Indication: HIV infection
     Route: 048
  117. ENFUVIRTIDE [Concomitant]
     Active Substance: ENFUVIRTIDE
     Indication: Product used for unknown indication
     Route: 058
  118. ENFUVIRTIDE [Concomitant]
     Active Substance: ENFUVIRTIDE
  119. ENFUVIRTIDE [Concomitant]
     Active Substance: ENFUVIRTIDE
  120. TENOFOVIR SANDOZ [TENOFOVIR DISOPROXIL] [Concomitant]
     Indication: Product used for unknown indication
  121. EMTRIVA [Concomitant]
     Active Substance: EMTRICITABINE
     Indication: Product used for unknown indication
  122. LOPINAVIR AND RITONAVIR [Concomitant]
     Active Substance: LOPINAVIR\RITONAVIR
     Indication: HIV infection
     Route: 048
  123. QUETIAPINE FUMARATE [Concomitant]
     Active Substance: QUETIAPINE FUMARATE
     Indication: HIV infection
     Route: 048
  124. QUETIAPINE FUMARATE [Concomitant]
     Active Substance: QUETIAPINE FUMARATE
     Indication: Mental disorder
     Route: 048
  125. QUETIAPINE FUMARATE [Concomitant]
     Active Substance: QUETIAPINE FUMARATE
     Indication: Depression
     Route: 048
  126. QUETIAPINE FUMARATE [Concomitant]
     Active Substance: QUETIAPINE FUMARATE
     Indication: Bipolar disorder
     Route: 048
  127. QUETIAPINE FUMARATE [Concomitant]
     Active Substance: QUETIAPINE FUMARATE
     Route: 048
  128. QUETIAPINE FUMARATE [Concomitant]
     Active Substance: QUETIAPINE FUMARATE
  129. QUETIAPINE FUMARATE [Concomitant]
     Active Substance: QUETIAPINE FUMARATE
     Route: 048
  130. QUETIAPINE FUMARATE [Concomitant]
     Active Substance: QUETIAPINE FUMARATE
     Route: 048
  131. VALPROATE SODIUM [Concomitant]
     Active Substance: VALPROATE SODIUM
     Indication: Bipolar disorder
  132. CELECOXIB [Concomitant]
     Active Substance: CELECOXIB
     Indication: Psychotic disorder
  133. CITALOPRAM [Concomitant]
     Active Substance: CITALOPRAM
     Indication: Psychotic disorder
  134. CITALOPRAM [Concomitant]
     Active Substance: CITALOPRAM
     Indication: Mental disorder
  135. TENOFOVIR DISOPROXIL FUMARATE [Concomitant]
     Active Substance: TENOFOVIR DISOPROXIL FUMARATE
     Indication: Product used for unknown indication
  136. VIREAD [Concomitant]
     Active Substance: TENOFOVIR DISOPROXIL FUMARATE
     Indication: Product used for unknown indication
  137. CHLOROPHYLLIN COPPER COMPLEX SODIUM;HERBAL NOS [Concomitant]
     Indication: Bipolar disorder
  138. ABACAVIR SULFATE\LAMIVUDINE\ZIDOVUDINE [Concomitant]
     Active Substance: ABACAVIR SULFATE\LAMIVUDINE\ZIDOVUDINE
     Indication: HIV infection

REACTIONS (15)
  - Depression [Fatal]
  - Drug interaction [Fatal]
  - Loss of personal independence in daily activities [Recovered/Resolved]
  - Prescribed overdose [Unknown]
  - Off label use [Unknown]
  - Anxiety [Recovered/Resolved]
  - Depression suicidal [Recovered/Resolved]
  - Paranoia [Unknown]
  - Psychomotor retardation [Unknown]
  - Psychomotor skills impaired [Recovered/Resolved]
  - Psychotic disorder [Recovered/Resolved]
  - Suicidal ideation [Recovered/Resolved]
  - Intentional product use issue [Unknown]
  - Psychiatric decompensation [Unknown]
  - Tearfulness [Unknown]
